FAERS Safety Report 25130120 (Version 1)
Quarter: 2025Q1

REPORT INFORMATION
  Report Type: Spontaneous
  Country: GB (occurrence: GB)
  Receive Date: 20250327
  Receipt Date: 20250327
  Transmission Date: 20250409
  Serious: Yes (Other)
  Sender: GALPHARM INTERNATIONAL
  Company Number: None

PATIENT
  Age: 47 Year
  Sex: Female
  Weight: 44 kg

DRUGS (2)
  1. IBUPROFEN [Suspect]
     Active Substance: IBUPROFEN
     Indication: Product used for unknown indication
     Route: 065
  2. LORATADINE [Concomitant]
     Active Substance: LORATADINE
     Dates: start: 20250319

REACTIONS (1)
  - Lip swelling [Recovering/Resolving]
